FAERS Safety Report 4569229-6 (Version None)
Quarter: 2005Q1

REPORT INFORMATION
  Report Type: 
  Country: None (occurrence: None)
  Receive Date: 20050203
  Receipt Date: 20050129
  Transmission Date: 20050727
  Serious: Yes (Other)
  Sender: FDA-Public Use
  Company Number: PHEH2005US01475

PATIENT
  Sex: Female

DRUGS (3)
  1. DIOVAN [Suspect]
     Dosage: 80 MG, UNK
     Route: 048
  2. HYDROCHLOROTHIAZIDE [Suspect]
  3. POTASSIUM CHLORIDE [Concomitant]

REACTIONS (1)
  - HEART RATE INCREASED [None]
